FAERS Safety Report 11361352 (Version 4)
Quarter: 2015Q4

REPORT INFORMATION
  Report Type: Spontaneous
  Country: AR (occurrence: AR)
  Receive Date: 20150810
  Receipt Date: 20151030
  Transmission Date: 20160304
  Serious: Yes (Other)
  Sender: FDA-Public Use
  Company Number: AR-PFIZER INC-2015259416

PATIENT
  Age: 65 Year
  Sex: Female

DRUGS (4)
  1. DAONIL [Concomitant]
     Active Substance: GLYBURIDE
     Dosage: UNK
  2. INLYTA [Suspect]
     Active Substance: AXITINIB
     Indication: RENAL CANCER
     Dosage: 10 MG, DAILY
     Dates: start: 20140717
  3. INLYTA [Suspect]
     Active Substance: AXITINIB
     Dosage: UNK
     Dates: end: 201508
  4. COLMIBE [Concomitant]
     Dosage: UNK

REACTIONS (4)
  - Abdominal pain [Recovered/Resolved]
  - Tooth disorder [Recovering/Resolving]
  - Osteomyelitis [Recovered/Resolved]
  - Thyroid disorder [Not Recovered/Not Resolved]

NARRATIVE: CASE EVENT DATE: 201503
